FAERS Safety Report 4974583-7 (Version None)
Quarter: 2006Q2

REPORT INFORMATION
  Report Type: 
  Country: None (occurrence: None)
  Receive Date: 20060410
  Receipt Date: 20060328
  Transmission Date: 20061013
  Serious: Yes (Other)
  Sender: FDA-Public Use
  Company Number: 2006044505

PATIENT
  Sex: Female

DRUGS (1)
  1. DEPO-PROVERA [Suspect]
     Indication: CONTRACEPTION
     Dosage: SINGLE INJECTION
     Dates: start: 19980820, end: 19980820

REACTIONS (4)
  - DRUG EXPOSURE DURING PREGNANCY [None]
  - LOCHIA MALODOUROUS [None]
  - MALAISE [None]
  - PREGNANCY WITH INJECTABLE CONTRACEPTIVE [None]
